FAERS Safety Report 13438883 (Version 1)
Quarter: 2017Q2

REPORT INFORMATION
  Report Type: Spontaneous
  Country: US (occurrence: US)
  Receive Date: 20170413
  Receipt Date: 20170413
  Transmission Date: 20170830
  Serious: Yes (Other)
  Sender: FDA-Public Use
  Company Number: US-ROCHE-1202962

PATIENT
  Age: 71 Year
  Sex: Female

DRUGS (4)
  1. CEFTRIAXONE. [Suspect]
     Active Substance: CEFTRIAXONE
     Indication: BACTERIAL SEPSIS
     Route: 042
  2. ACETAMINOPHEN. [Concomitant]
     Active Substance: ACETAMINOPHEN
     Route: 048
  3. HYDROXYZINE [Concomitant]
     Active Substance: HYDROXYZINE HYDROCHLORIDE
     Route: 030
  4. MEPERIDINE [Concomitant]
     Active Substance: MEPERIDINE
     Route: 030

REACTIONS (1)
  - Pancreatitis acute [Recovered/Resolved]
